FAERS Safety Report 14894761 (Version 1)
Quarter: 2018Q2

REPORT INFORMATION
  Report Type: Report from Study
  Country: US (occurrence: US)
  Receive Date: 20180515
  Receipt Date: 20180515
  Transmission Date: 20180711
  Serious: Yes (Other)
  Sender: FDA-Public Use
  Company Number: US-ROCHE-2119531

PATIENT

DRUGS (1)
  1. HEMLIBRA [Suspect]
     Active Substance: EMICIZUMAB-KXWH
     Indication: FACTOR VIII DEFICIENCY
     Dosage: ONGOING: UNKNOWN
     Route: 058

REACTIONS (5)
  - Pain [Unknown]
  - Venous injury [Unknown]
  - Joint injury [Unknown]
  - Treatment noncompliance [Unknown]
  - Haemorrhage [Unknown]
